FAERS Safety Report 10075702 (Version 5)
Quarter: 2015Q1

REPORT INFORMATION
  Report Type: Spontaneous
  Country: US (occurrence: US)
  Receive Date: 20140414
  Receipt Date: 20150220
  Transmission Date: 20150720
  Serious: No
  Sender: FDA-Public Use
  Company Number: US-009507513-1404USA004052

PATIENT
  Sex: Male

DRUGS (1)
  1. PROPECIA [Suspect]
     Active Substance: FINASTERIDE
     Indication: ALOPECIA
     Dosage: 1 MG, QD
     Route: 048
     Dates: start: 19990805, end: 20011205

REACTIONS (15)
  - Vasectomy [Unknown]
  - Depression [Unknown]
  - Premature ejaculation [Not Recovered/Not Resolved]
  - Erectile dysfunction [Unknown]
  - Lymphadenopathy [Unknown]
  - Tenosynovitis [Unknown]
  - Folliculitis [Unknown]
  - Gynaecomastia [Unknown]
  - Breast hyperplasia [Unknown]
  - Anxiety [Unknown]
  - Joint injury [Unknown]
  - Gynaecomastia [Unknown]
  - Sexual dysfunction [Unknown]
  - Libido decreased [Unknown]
  - Mammary duct ectasia [Unknown]

NARRATIVE: CASE EVENT DATE: 1999
